FAERS Safety Report 5908221-3 (Version None)
Quarter: 2008Q4

REPORT INFORMATION
  Report Type: 
  Country: None (occurrence: None)
  Receive Date: 20081006
  Receipt Date: 20080926
  Transmission Date: 20090506
  Serious: Yes (Other)
  Sender: FDA-Public Use
  Company Number: US-JNJFOC-20081000012

PATIENT
  Sex: Female
  Weight: 101.15 kg

DRUGS (3)
  1. DURAGESIC-100 [Suspect]
     Indication: BACK PAIN
     Dosage: 1 X 100 UG/HR AND 1 X 50 UG/HR
     Route: 062
  2. PROTONIX [Concomitant]
     Indication: GASTROOESOPHAGEAL REFLUX DISEASE
     Route: 048
  3. XYZAL [Concomitant]
     Indication: MULTIPLE ALLERGIES
     Route: 048

REACTIONS (3)
  - DEPRESSION [None]
  - LYMPHADENOPATHY [None]
  - POSTOPERATIVE WOUND INFECTION [None]
